FAERS Safety Report 9344241 (Version 1)
Quarter: 2013Q2

REPORT INFORMATION
  Report Type: Spontaneous
  Country: US (occurrence: US)
  Receive Date: 20130612
  Receipt Date: 20130612
  Transmission Date: 20140414
  Serious: No
  Sender: FDA-Public Use
  Company Number: US-ASTRAZENECA-2013SE38705

PATIENT
  Age: 63 Year
  Sex: Female
  Weight: 93.9 kg

DRUGS (5)
  1. PRILOSEC [Suspect]
     Route: 048
  2. CRESTOR [Suspect]
     Indication: BLOOD CHOLESTEROL INCREASED
     Route: 048
     Dates: start: 201208
  3. MULTIPLE VITAMINS [Concomitant]
  4. CALCIUM [Concomitant]
  5. ASPIRIN [Concomitant]
     Dosage: 1/4 GRAIN DAILY
     Route: 048

REACTIONS (5)
  - Upper extremity mass [Not Recovered/Not Resolved]
  - Neuralgia [Recovered/Resolved]
  - Skin exfoliation [Not Recovered/Not Resolved]
  - Muscle spasms [Not Recovered/Not Resolved]
  - Muscle spasms [Not Recovered/Not Resolved]
